FAERS Safety Report 13507583 (Version 1)
Quarter: 2017Q2

REPORT INFORMATION
  Report Type: Spontaneous
  Country: FR (occurrence: FR)
  Receive Date: 20170503
  Receipt Date: 20170503
  Transmission Date: 20170830
  Serious: Yes (Hospitalization)
  Sender: FDA-Public Use
  Company Number: FR-ACCORD-051083

PATIENT
  Age: 71 Year
  Sex: Male

DRUGS (4)
  1. LEVOFOLINATE CALCIUM ZENTIVA [Suspect]
     Active Substance: LEVOLEUCOVORIN CALCIUM
     Indication: COLORECTAL CANCER METASTATIC
     Dosage: 200 MG/M2 BOLUS DOSE, ONCE EVERY TWO WEEKS
     Route: 042
     Dates: start: 20160523, end: 20170102
  2. PRAVASTATIN. [Suspect]
     Active Substance: PRAVASTATIN
     Indication: PRODUCT USED FOR UNKNOWN INDICATION
     Dates: end: 20170131
  3. FLUOROURACIL ACCORD [Suspect]
     Active Substance: FLUOROURACIL
     Indication: COLORECTAL CANCER METASTATIC
     Dosage: STRENGTH 50 MG/ML, 2400 MG/M2, ONCE EVERY TWO WEEK
     Route: 042
     Dates: start: 20160523, end: 20170102
  4. OXALIPLATIN ACCORD [Suspect]
     Active Substance: OXALIPLATIN
     Indication: COLORECTAL CANCER METASTATIC
     Dosage: STRENGTH: 5 MG/ML, 85 MG/M2, ONCE EVERY TWO WEEKS
     Route: 042
     Dates: start: 20160523, end: 20170102

REACTIONS (4)
  - Eosinophilic pneumonia [Recovered/Resolved]
  - Hypersensitivity [Unknown]
  - Rash papular [Recovered/Resolved]
  - Neuropathy peripheral [Unknown]

NARRATIVE: CASE EVENT DATE: 201610
